FAERS Safety Report 20110042 (Version 1)
Quarter: 2021Q4

REPORT INFORMATION
  Report Type: Spontaneous
  Country: US (occurrence: None)
  Receive Date: 20211124
  Receipt Date: 20211124
  Transmission Date: 20220303
  Serious: Yes (Other)
  Sender: FDA-Public Use
  Company Number: None

PATIENT
  Age: 22 Year
  Sex: Female
  Weight: 72.57 kg

DRUGS (1)
  1. LARIN FE 1/20 [Suspect]
     Active Substance: ETHINYL ESTRADIOL\NORETHINDRONE ACETATE
     Indication: Dysmenorrhoea
     Dosage: FREQUENCY : DAILY;?
     Route: 048
     Dates: start: 20210212, end: 20211108

REACTIONS (3)
  - Mental disorder [None]
  - Aggression [None]
  - Intentional self-injury [None]

NARRATIVE: CASE EVENT DATE: 20211109
